FAERS Safety Report 7867544-1 (Version None)
Quarter: 2011Q4

REPORT INFORMATION
  Report Type: 
  Country: None (occurrence: None)
  Receive Date: 20111028
  Receipt Date: 20111021
  Transmission Date: 20120403
  Serious: Yes (Hospitalization, Other)
  Sender: FDA-Public Use
  Company Number: PHHY2011US01326

PATIENT
  Sex: Female

DRUGS (12)
  1. CITRO-MAG [Concomitant]
     Indication: NAUSEA
     Dosage: 1 MG, Q2-3 HRS
  2. REBIF [Suspect]
     Dosage: UNK UKN, UNK
  3. AVONEX [Suspect]
     Dosage: UNK UKN, QW
  4. TRAZODONE HYDROCHLORIDE [Concomitant]
     Dosage: 150 MG, PRN
  5. KLONOPIN [Concomitant]
     Dosage: 2 MG, UNK
  6. COPAXONE [Suspect]
     Dosage: UNK UKN, UNK
  7. TYSABRI [Suspect]
     Dosage: UNK UKN, ONCE IN A MONTH
  8. NUCYNTA [Suspect]
     Dosage: 100 MG, QID
  9. TOPAMAX [Concomitant]
     Dosage: 200 MG, QD
  10. ZANAFLEX [Concomitant]
     Dosage: 4 MG, PRN
  11. GILENYA [Suspect]
     Indication: MULTIPLE SCLEROSIS
     Dosage: 0.5 MG, QD
     Route: 048
     Dates: start: 20110104
  12. ZOFRAN [Concomitant]
     Dosage: 8 MG, PRN

REACTIONS (18)
  - RETCHING [None]
  - DECREASED APPETITE [None]
  - PYREXIA [None]
  - THROAT TIGHTNESS [None]
  - AMNESIA [None]
  - MALAISE [None]
  - ASTHENIA [None]
  - VOMITING [None]
  - CONTUSION [None]
  - HYPERSOMNIA [None]
  - IMPAIRED GASTRIC EMPTYING [None]
  - FATIGUE [None]
  - WEIGHT DECREASED [None]
  - MOVEMENT DISORDER [None]
  - DISTURBANCE IN ATTENTION [None]
  - VISUAL IMPAIRMENT [None]
  - NAUSEA [None]
  - DEHYDRATION [None]
